FAERS Safety Report 10261001 (Version 1)
Quarter: 2014Q2

REPORT INFORMATION
  Report Type: Spontaneous
  Country: US (occurrence: US)
  Receive Date: 20140626
  Receipt Date: 20140626
  Transmission Date: 20141212
  Serious: No
  Sender: FDA-Public Use
  Company Number: US-PFIZER INC-2014171219

PATIENT
  Sex: Female

DRUGS (2)
  1. AZITHROMYCIN [Suspect]
     Indication: ABSCESS ORAL
     Dosage: UNK
  2. AZITHROMYCIN [Suspect]
     Indication: TOOTH INFECTION

REACTIONS (1)
  - Drug ineffective [Unknown]
